FAERS Safety Report 15192680 (Version 1)
Quarter: 2018Q3

REPORT INFORMATION
  Report Type: Spontaneous
  Country: FR (occurrence: FR)
  Receive Date: 20180725
  Receipt Date: 20180725
  Transmission Date: 20181010
  Serious: Yes (Hospitalization)
  Sender: FDA-Public Use
  Company Number: FR-TEVA-2018-FR-931990

PATIENT
  Age: 83 Year
  Sex: Female

DRUGS (4)
  1. CLARITINE 10 MG [Suspect]
     Active Substance: LORATADINE
     Indication: MULTIPLE ALLERGIES
     Dosage: 1 DOSAGE FORMS DAILY; 1 DF, QD
     Route: 065
  2. CLAMOXYL (AMOXICILLIN\CLAVULANATE POTASSIUM) [Concomitant]
     Active Substance: AMOXICILLIN\CLAVULANATE POTASSIUM
     Indication: TOOTH INFECTION
     Dosage: UNK
     Route: 065
     Dates: start: 201711
  3. AMOXICILLIN SODIUM, POTASSIUM CLAVULANATE [Suspect]
     Active Substance: AMOXICILLIN\CLAVULANATE POTASSIUM
     Indication: DIVERTICULITIS
     Dosage: UNK
     Route: 065
     Dates: start: 20171216
  4. TAREG [Concomitant]
     Active Substance: VALSARTAN
     Indication: HYPERTENSION
     Dosage: 1 DOSAGE FORMS DAILY; 1 DF, QD
     Route: 065

REACTIONS (7)
  - Somnolence [Unknown]
  - Off label use [Unknown]
  - Diverticulitis [Unknown]
  - Vertigo [Unknown]
  - Product use issue [Unknown]
  - Feeling hot [Unknown]
  - Tooth infection [Unknown]

NARRATIVE: CASE EVENT DATE: 2017
